FAERS Safety Report 8200601-9 (Version None)
Quarter: 2012Q1

REPORT INFORMATION
  Report Type: 
  Country: None (occurrence: None)
  Receive Date: 20120312
  Receipt Date: 20120304
  Transmission Date: 20120608
  Serious: No
  Sender: FDA-Public Use
  Company Number: US-PFIZER INC-2012047113

PATIENT
  Sex: Male
  Weight: 69.388 kg

DRUGS (2)
  1. POTASSIUM PENICILLIN G [Suspect]
     Dosage: 500 MG, 3X/DAY
  2. MECLIZINE [Concomitant]
     Indication: VERTIGO
     Dosage: UNK

REACTIONS (1)
  - HYPERSENSITIVITY [None]
